FAERS Safety Report 15547756 (Version 1)
Quarter: 2018Q4

REPORT INFORMATION
  Report Type: Spontaneous
  Country: FR (occurrence: FR)
  Receive Date: 20181024
  Receipt Date: 20181024
  Transmission Date: 20190205
  Serious: Yes (Other)
  Sender: FDA-Public Use
  Company Number: FR-PFIZER INC-2018416016

PATIENT
  Sex: Male

DRUGS (7)
  1. RIFABUTIN. [Suspect]
     Active Substance: RIFABUTIN
     Dosage: UNK
  2. CLARITHROMYCIN. [Suspect]
     Active Substance: CLARITHROMYCIN
     Dosage: UNK
  3. MYCOPHENOLATE MOFETIL. [Concomitant]
     Active Substance: MYCOPHENOLATE MOFETIL
     Dosage: UNK
  4. PREDNISONE. [Concomitant]
     Active Substance: PREDNISONE
     Dosage: UNK
  5. VORICONAZOLE. [Suspect]
     Active Substance: VORICONAZOLE
     Indication: ASPERGILLUS INFECTION
     Dosage: 400 MG, 1X/DAY
     Route: 065
  6. ETHAMBUTOL [Suspect]
     Active Substance: ETHAMBUTOL HYDROCHLORIDE
     Dosage: UNK
  7. TACROLIMUS. [Concomitant]
     Active Substance: TACROLIMUS
     Dosage: UNK

REACTIONS (4)
  - Drug resistance [Unknown]
  - Bronchial artery embolisation [Unknown]
  - Haemoptysis [Unknown]
  - Treatment failure [Unknown]

NARRATIVE: CASE EVENT DATE: 201102
